FAERS Safety Report 11871280 (Version 1)
Quarter: 2015Q4

REPORT INFORMATION
  Report Type: Spontaneous
  Country: US (occurrence: US)
  Receive Date: 20151228
  Receipt Date: 20151228
  Transmission Date: 20160305
  Serious: Yes (Other)
  Sender: FDA-Public Use
  Company Number: US-MYLANLABS-2015M1047076

PATIENT

DRUGS (1)
  1. TOPIRAMATE. [Suspect]
     Active Substance: TOPIRAMATE
     Indication: PRODUCT USED FOR UNKNOWN INDICATION
     Dosage: 25MG DAILY
     Route: 065

REACTIONS (4)
  - Retinal disorder [Recovered/Resolved]
  - Toxicity to various agents [Recovered/Resolved]
  - Flat anterior chamber of eye [Recovered/Resolved]
  - Myopia [Recovered/Resolved]
